FAERS Safety Report 16539642 (Version 4)
Quarter: 2019Q3

REPORT INFORMATION
  Report Type: Spontaneous
  Country: FR (occurrence: FR)
  Receive Date: 20190708
  Receipt Date: 20190926
  Transmission Date: 20191004
  Serious: Yes (Other)
  Sender: FDA-Public Use
  Company Number: FR-SHIRE-FR201921281

PATIENT

DRUGS (30)
  1. PARACETAMOL [Concomitant]
     Active Substance: ACETAMINOPHEN
     Indication: MUSCULAR WEAKNESS
     Route: 065
  2. LACTATED RINGERS SOLUTION [Concomitant]
     Active Substance: CALCIUM CHLORIDE\POTASSIUM CHLORIDE\SODIUM CHLORIDE\SODIUM LACTATE
     Indication: ASTHENIA
  3. BERINERT [Suspect]
     Active Substance: HUMAN C1-ESTERASE INHIBITOR
     Indication: PROPHYLAXIS
     Route: 065
  4. REMIFENTANIL [Concomitant]
     Active Substance: REMIFENTANIL
     Indication: MUSCULAR WEAKNESS
  5. AUGMENTIN [Concomitant]
     Active Substance: AMOXICILLIN\CLAVULANATE POTASSIUM
     Indication: ASTHENIA
  6. DEXAMETHASONE. [Concomitant]
     Active Substance: DEXAMETHASONE
     Indication: ASTHENIA
  7. PARACETAMOL [Concomitant]
     Active Substance: ACETAMINOPHEN
     Indication: ASTHENIA
  8. PARACETAMOL [Concomitant]
     Active Substance: ACETAMINOPHEN
     Indication: DYSPNOEA
  9. LACTATED RINGERS SOLUTION [Concomitant]
     Active Substance: CALCIUM CHLORIDE\POTASSIUM CHLORIDE\SODIUM CHLORIDE\SODIUM LACTATE
     Indication: MUSCULAR WEAKNESS
  10. REMIFENTANIL [Concomitant]
     Active Substance: REMIFENTANIL
     Indication: DYSPNOEA
     Route: 065
  11. PROPOFOL. [Concomitant]
     Active Substance: PROPOFOL
     Indication: DYSPNOEA
  12. XYLOCAINE [Concomitant]
     Active Substance: LIDOCAINE HYDROCHLORIDE
     Indication: MUSCULAR WEAKNESS
  13. TAKHZYRO [Suspect]
     Active Substance: LANADELUMAB-FLYO
     Indication: HEREDITARY ANGIOEDEMA
     Dosage: 300 MILLIGRAM, 2X A MONTH (TWICE MONTHLY)
     Route: 058
     Dates: start: 20190211, end: 20190617
  14. FIRAZYR [Concomitant]
     Active Substance: ICATIBANT ACETATE
     Indication: HEREDITARY ANGIOEDEMA
  15. AUGMENTIN [Concomitant]
     Active Substance: AMOXICILLIN\CLAVULANATE POTASSIUM
     Indication: DYSPNOEA
     Route: 065
  16. NEFOPAM [Concomitant]
     Active Substance: NEFOPAM
     Indication: DYSPNOEA
  17. LACTATED RINGERS SOLUTION [Concomitant]
     Active Substance: CALCIUM CHLORIDE\POTASSIUM CHLORIDE\SODIUM CHLORIDE\SODIUM LACTATE
     Indication: DYSPNOEA
     Route: 065
  18. PROPOFOL. [Concomitant]
     Active Substance: PROPOFOL
     Indication: MUSCULAR WEAKNESS
  19. PROPOFOL. [Concomitant]
     Active Substance: PROPOFOL
     Indication: ASTHENIA
  20. NEFOPAM [Concomitant]
     Active Substance: NEFOPAM
     Indication: ASTHENIA
  21. XYLOCAINE [Concomitant]
     Active Substance: LIDOCAINE HYDROCHLORIDE
     Indication: DYSPNOEA
     Route: 065
  22. AUGMENTIN [Concomitant]
     Active Substance: AMOXICILLIN\CLAVULANATE POTASSIUM
     Indication: MUSCULAR WEAKNESS
  23. KETAMINE [Concomitant]
     Active Substance: KETAMINE
     Indication: MUSCULAR WEAKNESS
     Route: 065
  24. REMIFENTANIL [Concomitant]
     Active Substance: REMIFENTANIL
     Indication: ASTHENIA
  25. XYLOCAINE [Concomitant]
     Active Substance: LIDOCAINE HYDROCHLORIDE
     Indication: ASTHENIA
  26. DEXAMETHASONE. [Concomitant]
     Active Substance: DEXAMETHASONE
     Indication: MUSCULAR WEAKNESS
     Route: 065
  27. DEXAMETHASONE. [Concomitant]
     Active Substance: DEXAMETHASONE
     Indication: DYSPNOEA
  28. NEFOPAM [Concomitant]
     Active Substance: NEFOPAM
     Indication: MUSCULAR WEAKNESS
     Route: 065
  29. KETAMINE [Concomitant]
     Active Substance: KETAMINE
     Indication: ASTHENIA
  30. KETAMINE [Concomitant]
     Active Substance: KETAMINE
     Indication: DYSPNOEA

REACTIONS (7)
  - Dyspnoea exertional [Recovered/Resolved]
  - Muscle fatigue [Recovered/Resolved]
  - Asthenia [Recovering/Resolving]
  - Muscular weakness [Unknown]
  - Inappropriate schedule of product administration [Unknown]
  - Product physical consistency issue [Unknown]
  - Dyspnoea [Unknown]

NARRATIVE: CASE EVENT DATE: 20190211
